FAERS Safety Report 16798140 (Version 2)
Quarter: 2019Q3

REPORT INFORMATION
  Report Type: Spontaneous
  Country: IT (occurrence: IT)
  Receive Date: 20190912
  Receipt Date: 20190927
  Transmission Date: 20191005
  Serious: Yes (Death)
  Sender: FDA-Public Use
  Company Number: IT-HIKMA PHARMACEUTICALS USA INC.-IT-H14001-19-46937

PATIENT
  Age: 56 Year
  Sex: Female

DRUGS (3)
  1. PIPERACILLINA/TAZOBACTAM [Suspect]
     Active Substance: PIPERACILLIN SODIUM\TAZOBACTAM SODIUM
     Indication: SEPTIC SHOCK
     Route: 042
     Dates: start: 20190220
  2. FLUCONAZOLE. [Suspect]
     Active Substance: FLUCONAZOLE
     Indication: FUNGAL SEPSIS
     Route: 042
  3. CEFAZOLIN SODIUM. [Suspect]
     Active Substance: CEFAZOLIN SODIUM
     Indication: BACTERIAL SEPSIS
     Route: 042
     Dates: start: 20190220

REACTIONS (2)
  - Product preparation error [Fatal]
  - Hypotension [Fatal]

NARRATIVE: CASE EVENT DATE: 20190220
